FAERS Safety Report 8143406-X (Version None)
Quarter: 2012Q1

REPORT INFORMATION
  Report Type: 
  Country: None (occurrence: None)
  Receive Date: 20120103
  Receipt Date: 20111102
  Transmission Date: 20120608
  Serious: No
  Sender: FDA-Public Use
  Company Number: AE-2011-002972

PATIENT
  Age: 55 Year
  Sex: Male
  Weight: 127.0072 kg

DRUGS (7)
  1. RAMIPRIL [Concomitant]
  2. LEVEMIR [Concomitant]
  3. PEGASYS [Concomitant]
  4. RIBAVIRIN [Concomitant]
  5. INCIVEK [Suspect]
     Dosage: 2250 MG (750 MG, 1 IN 8 HR)
     Dates: start: 20111021
  6. WELCHOL [Concomitant]
  7. NOVOLOG [Concomitant]

REACTIONS (2)
  - HAEMATOCHEZIA [None]
  - DIARRHOEA [None]
